FAERS Safety Report 6242321-6 (Version None)
Quarter: 2009Q2

REPORT INFORMATION
  Report Type: 
  Country: None (occurrence: None)
  Receive Date: 20090624
  Receipt Date: 20090619
  Transmission Date: 20091009
  Serious: Yes (Hospitalization)
  Sender: FDA-Public Use
  Company Number: US-BIOGENIDEC-2007BI011211

PATIENT
  Age: 49 Year
  Sex: Female
  Weight: 54 kg

DRUGS (4)
  1. TYSABRI [Suspect]
     Indication: DRUG USE FOR UNKNOWN INDICATION
     Route: 042
     Dates: start: 20070120
  2. ASPIRIN [Concomitant]
     Indication: PROPHYLAXIS
     Dates: start: 19990101
  3. ZANAFLEX [Concomitant]
     Indication: MUSCLE SPASMS
     Dates: start: 20060101
  4. FLOMAX [Concomitant]
     Indication: BLADDER SPASM
     Dates: start: 20040101

REACTIONS (10)
  - ANAEMIA [None]
  - BODY TEMPERATURE INCREASED [None]
  - CHEST PAIN [None]
  - CYSTITIS [None]
  - DEHYDRATION [None]
  - DIARRHOEA [None]
  - FATIGUE [None]
  - MUSCLE SPASMS [None]
  - PAIN [None]
  - VIRAL INFECTION [None]
